FAERS Safety Report 25653600 (Version 4)
Quarter: 2025Q3

REPORT INFORMATION
  Report Type: Spontaneous
  Country: EU (occurrence: EU)
  Receive Date: 20250807
  Receipt Date: 20250908
  Transmission Date: 20251020
  Serious: Yes (Other)
  Sender: AMGEN
  Company Number: EU-AMGEN-IRLSP2025154109

PATIENT
  Age: 60 Year
  Sex: Female

DRUGS (1)
  1. ARANESP [Suspect]
     Active Substance: DARBEPOETIN ALFA
     Indication: Product used for unknown indication
     Dosage: 500 MICROGRAM, Q3WK
     Route: 065
     Dates: end: 2025

REACTIONS (2)
  - Myelodysplastic syndrome [Unknown]
  - Nausea [Recovered/Resolved]
